FAERS Safety Report 9887765 (Version 2)
Quarter: 2014Q1

REPORT INFORMATION
  Report Type: Spontaneous
  Country: US (occurrence: US)
  Receive Date: 20140211
  Receipt Date: 20140225
  Transmission Date: 20141002
  Serious: Yes (Hospitalization)
  Sender: FDA-Public Use
  Company Number: US-ROCHE-1343778

PATIENT
  Age: 13 Year
  Sex: Male

DRUGS (1)
  1. NUTROPIN AQ [Suspect]
     Indication: BODY HEIGHT BELOW NORMAL
     Route: 065

REACTIONS (1)
  - Immune thrombocytopenic purpura [Unknown]
